FAERS Safety Report 14183857 (Version 1)
Quarter: 2017Q4

REPORT INFORMATION
  Report Type: Spontaneous
  Country: RU (occurrence: RU)
  Receive Date: 20171113
  Receipt Date: 20171113
  Transmission Date: 20180321
  Serious: Yes (Hospitalization)
  Sender: FDA-Public Use
  Company Number: RU-ABBVIE-17P-251-2161879-00

PATIENT
  Age: 12 Month
  Sex: Male

DRUGS (3)
  1. DEPAKINE [Suspect]
     Active Substance: VALPROATE SODIUM
     Indication: BRONCHITIS
     Route: 048
     Dates: start: 20171011
  2. DEPAKINE [Suspect]
     Active Substance: VALPROATE SODIUM
     Indication: PANCREATIC FAILURE
  3. DEPAKINE [Suspect]
     Active Substance: VALPROATE SODIUM
     Indication: HYPERTHERMIA
     Route: 048

REACTIONS (1)
  - Urticaria [Recovered/Resolved]

NARRATIVE: CASE EVENT DATE: 20171012
